FAERS Safety Report 16332934 (Version 1)
Quarter: 2019Q2

REPORT INFORMATION
  Report Type: Report from Study
  Country: None (occurrence: RO)
  Receive Date: 20190520
  Receipt Date: 20190520
  Transmission Date: 20190711
  Serious: Yes (Other)
  Sender: FDA-Public Use
  Company Number: RO-ABBVIE-19S-135-2786912-00

PATIENT
  Age: 73 Year
  Sex: Male

DRUGS (1)
  1. DUODOPA [Suspect]
     Active Substance: CARBIDOPA\LEVODOPA
     Indication: PARKINSON^S DISEASE
     Dosage: DM=10.50 DC=5.90 ED=3.50 NRED=3; DMN=0.00 DCN=0.00 EDN=0.00 NREDN=0
     Route: 050
     Dates: start: 20140603

REACTIONS (4)
  - Cerebrovascular accident [Unknown]
  - General physical health deterioration [Unknown]
  - Mobility decreased [Unknown]
  - Hypophagia [Unknown]

NARRATIVE: CASE EVENT DATE: 20190514
